FAERS Safety Report 7532649-1 (Version None)
Quarter: 2011Q2

REPORT INFORMATION
  Report Type: 
  Country: None (occurrence: None)
  Receive Date: 20110608
  Receipt Date: 20110524
  Transmission Date: 20111010
  Serious: No
  Sender: FDA-Public Use
  Company Number: US-B.I. PHARMACEUTICALS,INC./RIDGEFIELD-2011-BP-08820BP

PATIENT
  Sex: Male

DRUGS (3)
  1. LORAZEPAM [Concomitant]
     Dosage: 0.5 MG
  2. SIMVASTATIN [Concomitant]
     Dosage: 20 MG
  3. PRADAXA [Suspect]
     Indication: ATRIAL FIBRILLATION
     Dosage: 300 MG
     Dates: start: 20101118

REACTIONS (2)
  - HAEMORRHAGE [None]
  - LACERATION [None]
